FAERS Safety Report 6348640-7 (Version None)
Quarter: 2009Q3

REPORT INFORMATION
  Report Type: 
  Country: None (occurrence: None)
  Receive Date: 20090908
  Receipt Date: 20090824
  Transmission Date: 20100115
  Serious: Yes (Hospitalization)
  Sender: FDA-Public Use
  Company Number: 2009SP002201

PATIENT
  Age: 44 Year
  Sex: Male

DRUGS (6)
  1. XOPENEX [Suspect]
     Indication: CEREBROVASCULAR ACCIDENT
     Dosage: 1.25 MG/3ML; Q6H; INHALATION
     Route: 055
     Dates: start: 20070101, end: 20090719
  2. XOPENEX [Suspect]
     Indication: DYSPNOEA
     Dosage: 1.25 MG/3ML; Q6H; INHALATION
     Route: 055
     Dates: start: 20070101, end: 20090719
  3. XOPENEX [Suspect]
     Indication: CEREBROVASCULAR ACCIDENT
     Dosage: 1.25 MG/3ML; Q6H; INHALATION
     Route: 055
     Dates: start: 20090801, end: 20090801
  4. XOPENEX [Suspect]
     Indication: DYSPNOEA
     Dosage: 1.25 MG/3ML; Q6H; INHALATION
     Route: 055
     Dates: start: 20090801, end: 20090801
  5. XOPENEX [Suspect]
     Indication: CEREBROVASCULAR ACCIDENT
     Dosage: 1.25 MG/3ML; Q6H; INHALATION
     Route: 055
     Dates: start: 20090824
  6. XOPENEX [Suspect]
     Indication: DYSPNOEA
     Dosage: 1.25 MG/3ML; Q6H; INHALATION
     Route: 055
     Dates: start: 20090824

REACTIONS (4)
  - PRODUCT QUALITY ISSUE [None]
  - PRODUCT SHAPE ISSUE [None]
  - RESPIRATORY DISTRESS [None]
  - SYSTEMIC MYCOSIS [None]
